FAERS Safety Report 12708597 (Version 1)
Quarter: 2016Q3

REPORT INFORMATION
  Report Type: Report from Study
  Country: US (occurrence: US)
  Receive Date: 20160901
  Receipt Date: 20160901
  Transmission Date: 20161109
  Serious: Yes (Hospitalization)
  Sender: FDA-Public Use
  Company Number: US-PFIZER INC-2011013464

PATIENT
  Age: 48 Year
  Sex: Female
  Weight: 87.98 kg

DRUGS (6)
  1. IBUPROFEN. [Suspect]
     Active Substance: IBUPROFEN
     Indication: OSTEOARTHRITIS
     Dosage: UNK
     Route: 048
     Dates: start: 20101208, end: 20110110
  2. IBUPROFEN. [Suspect]
     Active Substance: IBUPROFEN
     Indication: RHEUMATOID ARTHRITIS
  3. NEXIUM [Concomitant]
     Active Substance: ESOMEPRAZOLE MAGNESIUM
     Indication: PROPHYLAXIS
     Dosage: 20 MG, 1X/DAY
     Route: 048
     Dates: start: 20101208, end: 20110214
  4. FISH OIL [Concomitant]
     Active Substance: FISH OIL
     Indication: HYPERLIPIDAEMIA
     Dosage: 1000 MG, 3X/DAY
     Route: 048
     Dates: start: 20101210
  5. XANAX [Concomitant]
     Active Substance: ALPRAZOLAM
     Indication: PALPITATIONS
     Dosage: 2 TABLETS OF 0.5MG 1 TIME
     Route: 048
     Dates: start: 20110111, end: 20110111
  6. ASPIRIN. [Concomitant]
     Active Substance: ASPIRIN
     Indication: CARDIOVASCULAR EVENT PROPHYLAXIS
     Dosage: 81 MG, 1X/DAY
     Route: 048
     Dates: start: 2004, end: 20110112

REACTIONS (2)
  - Angina unstable [Recovered/Resolved]
  - Hypertension [Recovered/Resolved]

NARRATIVE: CASE EVENT DATE: 20110109
